FAERS Safety Report 6674264-8 (Version None)
Quarter: 2010Q2

REPORT INFORMATION
  Report Type: 
  Country: None (occurrence: None)
  Receive Date: 20100409
  Receipt Date: 20100331
  Transmission Date: 20101027
  Serious: Yes (Other)
  Sender: FDA-Public Use
  Company Number: US-JNJFOC-20100400563

PATIENT
  Sex: Female
  Weight: 90.72 kg

DRUGS (6)
  1. REMICADE [Suspect]
     Indication: ANKYLOSING SPONDYLITIS
     Dosage: DOSE, DATE FREQUENCY NOT REPORTED
     Route: 042
  2. REMICADE [Suspect]
     Dosage: DOSE, DATE FREQUENCY NOT REPORTED
     Route: 042
  3. LISINOPRIL [Concomitant]
  4. COUMADIN [Concomitant]
  5. GLIPIZIDE [Concomitant]
  6. ANTIDEPRESSANT NOS [Concomitant]

REACTIONS (4)
  - ASTHENIA [None]
  - CARDIAC OPERATION [None]
  - HEADACHE [None]
  - INFUSION RELATED REACTION [None]
